FAERS Safety Report 17870240 (Version 1)
Quarter: 2020Q2

REPORT INFORMATION
  Report Type: Report from Study
  Country: CN (occurrence: CN)
  Receive Date: 20200608
  Receipt Date: 20200608
  Transmission Date: 20200714
  Serious: Yes (Hospitalization, Other)
  Sender: FDA-Public Use
  Company Number: CN-ROCHE-2242652

PATIENT
  Age: 85 Year
  Sex: Male
  Weight: 52 kg

DRUGS (1)
  1. AVASTIN [Suspect]
     Active Substance: BEVACIZUMAB
     Indication: ADENOCARCINOMA OF COLON
     Route: 041
     Dates: start: 20170705, end: 20191023

REACTIONS (6)
  - Ileus [Unknown]
  - Haemorrhoidal haemorrhage [Unknown]
  - Small intestine operation [Unknown]
  - Movement disorder [Unknown]
  - Abnormal faeces [Unknown]
  - Decreased appetite [Unknown]

NARRATIVE: CASE EVENT DATE: 202004
